FAERS Safety Report 12655711 (Version 1)
Quarter: 2016Q3

REPORT INFORMATION
  Report Type: Spontaneous
  Country: US (occurrence: US)
  Receive Date: 20160816
  Receipt Date: 20160816
  Transmission Date: 20161109
  Serious: No
  Sender: FDA-Public Use
  Company Number: US-PFIZER INC-2016354713

PATIENT

DRUGS (2)
  1. PATANOL [Suspect]
     Active Substance: OLOPATADINE HYDROCHLORIDE
  2. DAYPRO [Suspect]
     Active Substance: OXAPROZIN

REACTIONS (1)
  - Drug hypersensitivity [Unknown]
